FAERS Safety Report 5058166-9 (Version None)
Quarter: 2006Q3

REPORT INFORMATION
  Report Type: 
  Country: None (occurrence: None)
  Receive Date: 20060721
  Receipt Date: 20060718
  Transmission Date: 20061208
  Serious: Yes (Hospitalization, Other)
  Sender: FDA-Public Use
  Company Number: 2006AP03314

PATIENT
  Age: 430 Month
  Sex: Male
  Weight: 112 kg

DRUGS (10)
  1. SEROQUEL [Suspect]
     Indication: SCHIZOPHRENIA
     Route: 048
     Dates: start: 20041225
  2. FLUDECASIN [Concomitant]
     Indication: SCHIZOPHRENIA
     Route: 030
     Dates: start: 20040826
  3. HALOMONTH [Concomitant]
     Indication: SCHIZOPHRENIA
     Route: 030
     Dates: start: 20011006
  4. ZOPICOOL [Concomitant]
     Indication: SCHIZOPHRENIA
     Route: 048
     Dates: start: 20051126
  5. NITRAZEPAM [Concomitant]
     Indication: SCHIZOPHRENIA
     Route: 048
     Dates: start: 20051126
  6. VALERIN [Concomitant]
     Indication: SCHIZOPHRENIA
     Route: 048
     Dates: start: 20051220
  7. MAGNESIUM OXIDE [Concomitant]
     Indication: CONSTIPATION
     Route: 048
     Dates: start: 20051126
  8. AKIRIDEN [Concomitant]
     Indication: PARKINSONISM
     Route: 048
     Dates: start: 20051126
  9. SOFMIN [Concomitant]
     Indication: SCHIZOPHRENIA
     Route: 048
     Dates: start: 20040522
  10. HALRACK [Concomitant]
     Indication: SCHIZOPHRENIA
     Route: 048
     Dates: start: 20051216

REACTIONS (5)
  - ABASIA [None]
  - BACK PAIN [None]
  - CARDIAC HYPERTROPHY [None]
  - OBESITY [None]
  - OEDEMA PERIPHERAL [None]
